FAERS Safety Report 6601141-0 (Version None)
Quarter: 2010Q1

REPORT INFORMATION
  Report Type: 
  Country: None (occurrence: None)
  Receive Date: 20100225
  Receipt Date: 20100217
  Transmission Date: 20100710
  Serious: Yes (Other)
  Sender: FDA-Public Use
  Company Number: US-JNJFOC-20091103201

PATIENT
  Sex: Female
  Weight: 52.62 kg

DRUGS (5)
  1. REMICADE [Suspect]
     Indication: POLYARTHRITIS
     Dosage: 4 INFUSIONS TOTAL
     Route: 042
  2. REMICADE [Suspect]
     Dosage: 4TH INFUSION
     Route: 042
  3. REMICADE [Suspect]
     Indication: PSORIATIC ARTHROPATHY
     Dosage: 4 INFUSIONS TOTAL
     Route: 042
  4. REMICADE [Suspect]
     Dosage: 4TH INFUSION
     Route: 042
  5. PREDNISONE [Concomitant]
     Indication: POLYARTHRITIS

REACTIONS (6)
  - BLOOD PRESSURE DECREASED [None]
  - DYSPNOEA [None]
  - HEART RATE DECREASED [None]
  - INFUSION RELATED REACTION [None]
  - OXYGEN SATURATION DECREASED [None]
  - PRURITUS [None]
